FAERS Safety Report 9124847 (Version 1)
Quarter: 2013Q1

REPORT INFORMATION
  Report Type: Spontaneous
  Country: US (occurrence: US)
  Receive Date: 20130117
  Receipt Date: 20130117
  Transmission Date: 20140127
  Serious: No
  Sender: FDA-Public Use
  Company Number: US-009507513-1301USA002205

PATIENT
  Age: 57 Year
  Sex: Male
  Weight: 90.7 kg

DRUGS (7)
  1. VICTRELIS [Suspect]
     Dosage: 800 MG, TID
     Route: 048
  2. PEGASYS [Suspect]
  3. RIBAPAK [Suspect]
     Dosage: 1200, QD
  4. BUPROPION HYDROCHLORIDE [Concomitant]
  5. SONATA [Concomitant]
  6. LOVAZA [Concomitant]
  7. VITAMINS (UNSPECIFIED) [Concomitant]

REACTIONS (6)
  - Rash pruritic [Unknown]
  - Fatigue [Unknown]
  - Dyspnoea [Unknown]
  - Dizziness [Unknown]
  - Anxiety [Unknown]
  - Rash generalised [Unknown]
